FAERS Safety Report 5146731-X (Version None)
Quarter: 2006Q4

REPORT INFORMATION
  Report Type: 
  Country: None (occurrence: None)
  Receive Date: 20061107
  Receipt Date: 20061107
  Transmission Date: 20070319
  Serious: Yes (Death)
  Sender: FDA-Public Use
  Company Number: None

PATIENT
  Age: 81 Year
  Sex: Male
  Weight: 61 kg

DRUGS (2)
  1. OMNIPAQUE 240 [Suspect]
     Indication: CERVICAL SPINAL STENOSIS
     Dosage: 12CC INJECTED INTO L3-L4 DISK SPACE
     Route: 050
     Dates: start: 20060726
  2. OMNIPAQUE 240 [Suspect]
     Indication: SPINAL MYELOGRAM
     Dosage: 12CC INJECTED INTO L3-L4 DISK SPACE
     Route: 050
     Dates: start: 20060726

REACTIONS (5)
  - AGONAL DEATH STRUGGLE [None]
  - BRAIN HERNIATION [None]
  - BRAIN OEDEMA [None]
  - MUSCLE SPASMS [None]
  - PAIN [None]
